FAERS Safety Report 24387236 (Version 1)
Quarter: 2024Q4

REPORT INFORMATION
  Report Type: Report from Study
  Country: US (occurrence: US)
  Receive Date: 20241002
  Receipt Date: 20241002
  Transmission Date: 20250114
  Serious: Yes (Other)
  Sender: ABBVIE
  Company Number: US-ABBVIE-5848128

PATIENT
  Sex: Female

DRUGS (2)
  1. IMBRUVICA [Suspect]
     Active Substance: IBRUTINIB
     Indication: Breast cancer female
     Route: 048
     Dates: end: 2024
  2. IMBRUVICA [Suspect]
     Active Substance: IBRUTINIB
     Indication: Breast cancer female
     Route: 048

REACTIONS (8)
  - Multiple sclerosis [Unknown]
  - Contusion [Recovering/Resolving]
  - COVID-19 [Recovering/Resolving]
  - Myalgia [Unknown]
  - Diarrhoea [Unknown]
  - Constipation [Unknown]
  - Central venous catheter removal [Unknown]
  - Nail disorder [Recovering/Resolving]

NARRATIVE: CASE EVENT DATE: 20240101
